FAERS Safety Report 6161092-5 (Version None)
Quarter: 2009Q2

REPORT INFORMATION
  Report Type: 
  Country: None (occurrence: None)
  Receive Date: 20090421
  Receipt Date: 20090409
  Transmission Date: 20091009
  Serious: Yes (Hospitalization)
  Sender: FDA-Public Use
  Company Number: US-SANOFI-SYNTHELABO-F01200900353

PATIENT
  Sex: Male

DRUGS (4)
  1. ASPIRIN [Concomitant]
  2. XELODA [Suspect]
     Route: 048
     Dates: start: 20090323, end: 20090323
  3. METOPROLOL SUCCINATE [Concomitant]
     Route: 065
  4. OXALIPLATIN [Suspect]
     Indication: COLON CANCER
     Route: 041
     Dates: start: 20090323, end: 20090323

REACTIONS (1)
  - MYOCARDIAL INFARCTION [None]
